FAERS Safety Report 4575089-X (Version None)
Quarter: 2005Q1

REPORT INFORMATION
  Report Type: 
  Country: None (occurrence: None)
  Receive Date: 20050208
  Receipt Date: 20050201
  Transmission Date: 20050727
  Serious: Yes (Death)
  Sender: FDA-Public Use
  Company Number: FR-GLAXOSMITHKLINE-B0369558A

PATIENT
  Age: 94 Year
  Sex: Male

DRUGS (2)
  1. AUGMENTIN '125' [Suspect]
     Dosage: 1G SINGLE DOSE
     Route: 042
     Dates: start: 20040101, end: 20040101
  2. ANTICOAGULANTS (UNSPECIFIED) [Concomitant]
     Route: 065

REACTIONS (2)
  - DEATH [None]
  - SHOCK [None]
